FAERS Safety Report 4339911-4 (Version None)
Quarter: 2004Q2

REPORT INFORMATION
  Report Type: 
  Country: None (occurrence: None)
  Receive Date: 20040412
  Receipt Date: 20040402
  Transmission Date: 20050107
  Serious: Yes (Hospitalization)
  Sender: FDA-Public Use
  Company Number: 04P-062-0255612-00

PATIENT
  Age: 62 Year
  Sex: Female
  Weight: 85 kg

DRUGS (9)
  1. HUMIRA [Suspect]
     Indication: RHEUMATOID ARTHRITIS
     Dosage: 40 MG, 1 IN 2 WK, SUBCUTANEOUS
     Route: 058
     Dates: start: 20040112, end: 20040322
  2. NEBIVOLOL [Concomitant]
  3. PREDNISOLONE [Concomitant]
  4. OMEPRAZOLE [Concomitant]
  5. LEKOVIT CA [Concomitant]
  6. ANTHROPOSOPHICA [Concomitant]
  7. MYRISTICA SEBIFERA COMP. [Concomitant]
  8. HEPARIN SULFURIS COMP. [Concomitant]
  9. BERBERIS PLANTA TOTA URTICA URENS [Concomitant]

REACTIONS (6)
  - ANGINA PECTORIS [None]
  - ARRHYTHMIA [None]
  - CORONARY ARTERY DISEASE [None]
  - DYSPEPSIA [None]
  - HYPERTENSION [None]
  - RESTLESSNESS [None]
